FAERS Safety Report 8244998-2 (Version None)
Quarter: 2012Q1

REPORT INFORMATION
  Report Type: 
  Country: None (occurrence: None)
  Receive Date: 20120329
  Receipt Date: 20120321
  Transmission Date: 20120608
  Serious: Yes (Other)
  Sender: FDA-Public Use
  Company Number: US-ASTRAZENECA-2012SE19743

PATIENT
  Age: 55 Year
  Sex: Female

DRUGS (13)
  1. VERAMYST [Concomitant]
     Route: 045
  2. FOLIC ACID [Concomitant]
  3. NEXIUM [Suspect]
     Route: 048
  4. HYDROCHLOROTHIAZIDE [Suspect]
     Indication: HYPERTENSION
     Route: 065
  5. TRAZODONE HCL [Concomitant]
     Dosage: QHS
  6. FUROSEMIDE [Concomitant]
     Route: 048
  7. MAXALT [Concomitant]
  8. COQ10 [Concomitant]
     Dosage: QD
  9. POTASSIUM CHLORIDE [Concomitant]
  10. PROTONIX [Concomitant]
     Dosage: QAM
  11. SYMBICORT [Suspect]
     Dosage: AS DIRECTED
     Route: 055
  12. ASPIRIN [Concomitant]
  13. FLEXERIL [Concomitant]
     Dosage: 10 MG TID PRN

REACTIONS (38)
  - POST PROCEDURAL INFECTION [None]
  - FLUID RETENTION [None]
  - MIGRAINE [None]
  - HYPOTHYROIDISM [None]
  - STREPTOCOCCUS TEST POSITIVE [None]
  - WEIGHT DECREASED [None]
  - GASTROOESOPHAGEAL REFLUX DISEASE [None]
  - ANXIETY [None]
  - CANDIDIASIS [None]
  - MUSCULOSKELETAL PAIN [None]
  - ADENOMA BENIGN [None]
  - PNEUMONIA [None]
  - ROAD TRAFFIC ACCIDENT [None]
  - VITAMIN D DEFICIENCY [None]
  - CHOLELITHIASIS [None]
  - DERMATITIS ATOPIC [None]
  - LIPOMA [None]
  - LARYNGITIS [None]
  - RADICULOPATHY [None]
  - GRAVITATIONAL OEDEMA [None]
  - GLUCOSE TOLERANCE IMPAIRED [None]
  - POLYP [None]
  - LYMPHATIC DISORDER [None]
  - ASTHMA [None]
  - RED BLOOD CELL SEDIMENTATION RATE INCREASED [None]
  - MENOPAUSAL SYMPTOMS [None]
  - ENDOMETRIOSIS [None]
  - MYALGIA [None]
  - DYSLIPIDAEMIA [None]
  - BARRETT'S OESOPHAGUS [None]
  - C-REACTIVE PROTEIN INCREASED [None]
  - DEPRESSION [None]
  - LEUKOCYTOSIS [None]
  - INGUINAL HERNIA [None]
  - OBESITY [None]
  - DYSPNOEA EXERTIONAL [None]
  - HIATUS HERNIA [None]
  - BODY TINEA [None]
